FAERS Safety Report 8995012 (Version 1)
Quarter: 2012Q4

REPORT INFORMATION
  Report Type: Spontaneous
  Country: US (occurrence: None)
  Receive Date: 20121220
  Receipt Date: 20121220
  Transmission Date: 20130627
  Serious: Yes (Other)
  Sender: FDA-Public Use
  Company Number: US-1195821

PATIENT

DRUGS (1)
  1. CIPRODEX OTIC EAR DROPS [Suspect]
     Dosage: (Auricular (otic))

REACTIONS (2)
  - Tympanic membrane perforation [None]
  - Impaired healing [None]
